FAERS Safety Report 7757278-6 (Version None)
Quarter: 2011Q3

REPORT INFORMATION
  Report Type: 
  Country: None (occurrence: None)
  Receive Date: 20110916
  Receipt Date: 20110909
  Transmission Date: 20111222
  Serious: Yes (Hospitalization, Other)
  Sender: FDA-Public Use
  Company Number: US-AMGEN-USASP2011046227

PATIENT
  Age: 57 Year
  Sex: Male

DRUGS (1)
  1. ENBREL [Suspect]
     Indication: RHEUMATOID ARTHRITIS
     Dosage: 50 MG, QWK
     Dates: start: 20101001, end: 20110826

REACTIONS (6)
  - PARALYSIS [None]
  - PARKINSON'S DISEASE [None]
  - BONE PAIN [None]
  - FATIGUE [None]
  - MUSCLE RIGIDITY [None]
  - ASTHENIA [None]
